FAERS Safety Report 7774903-4 (Version None)
Quarter: 2011Q3

REPORT INFORMATION
  Report Type: 
  Country: None (occurrence: None)
  Receive Date: 20110923
  Receipt Date: 20110914
  Transmission Date: 20111222
  Serious: Yes (Other)
  Sender: FDA-Public Use
  Company Number: NL-NOVOPROD-335106

PATIENT

DRUGS (2)
  1. NORDITROPIN NORDIFLEX [Suspect]
     Indication: PRODUCT USED FOR UNKNOWN INDICATION
     Dosage: 1.5 MG, QD
     Route: 065
  2. LEUPROLIDE ACETATE [Concomitant]
     Dosage: UNK
     Dates: start: 20110818

REACTIONS (1)
  - EPIPHYSIOLYSIS [None]
